FAERS Safety Report 5694159-6 (Version None)
Quarter: 2008Q2

REPORT INFORMATION
  Report Type: 
  Country: None (occurrence: None)
  Receive Date: 20080402
  Receipt Date: 20080324
  Transmission Date: 20081010
  Serious: Yes (Hospitalization)
  Sender: FDA-Public Use
  Company Number: 2008AL001810

PATIENT
  Age: 51 Year
  Sex: Male

DRUGS (1)
  1. ENULOSE [Suspect]
     Indication: HEPATIC ENCEPHALOPATHY
     Dosage: X1

REACTIONS (3)
  - LOWER GASTROINTESTINAL HAEMORRHAGE [None]
  - RECTAL FISSURE [None]
  - THROMBOSIS [None]
